FAERS Safety Report 16711779 (Version 1)
Quarter: 2019Q3

REPORT INFORMATION
  Report Type: Spontaneous
  Country: US (occurrence: US)
  Receive Date: 20190816
  Receipt Date: 20190816
  Transmission Date: 20191004
  Serious: No
  Sender: FDA-Public Use
  Company Number: US-SA-2019SA227352

PATIENT
  Age: 52 Year
  Sex: Female

DRUGS (1)
  1. LANTUS SOLOSTAR [Suspect]
     Active Substance: INSULIN GLARGINE
     Indication: TYPE 2 DIABETES MELLITUS
     Dosage: 16 U, QD
     Route: 065
     Dates: start: 201907

REACTIONS (4)
  - Device operational issue [Unknown]
  - Hyperglycaemia [Unknown]
  - Incorrect dose administered by device [Unknown]
  - Oral surgery [Unknown]

NARRATIVE: CASE EVENT DATE: 20190808
